FAERS Safety Report 12266995 (Version 2)
Quarter: 2016Q2

REPORT INFORMATION
  Report Type: Spontaneous
  Country: US (occurrence: US)
  Receive Date: 20160414
  Receipt Date: 20160510
  Transmission Date: 20160815
  Serious: No
  Sender: FDA-Public Use
  Company Number: US-PFIZER INC-2016167936

PATIENT
  Age: 60 Year
  Sex: Female

DRUGS (3)
  1. XELJANZ [Suspect]
     Active Substance: TOFACITINIB CITRATE
     Dosage: UNK, 1X/DAY
     Dates: start: 20160318, end: 20160412
  2. MAGNESIUM COMPLEX [Concomitant]
     Indication: MUSCLE SPASMS
     Dosage: 500 MG, 2X/DAY
  3. XELJANZ [Suspect]
     Active Substance: TOFACITINIB CITRATE
     Indication: RHEUMATOID ARTHRITIS
     Dosage: UNK UNK, 2X/DAY
     Dates: start: 20160312, end: 20160317

REACTIONS (3)
  - Upper respiratory tract infection [Unknown]
  - Muscle spasms [Recovered/Resolved]
  - Urinary tract infection [Unknown]
